FAERS Safety Report 19670799 (Version 1)
Quarter: 2021Q3

REPORT INFORMATION
  Report Type: Report from Study
  Country: EG (occurrence: EG)
  Receive Date: 20210806
  Receipt Date: 20210806
  Transmission Date: 20211014
  Serious: Yes (Death, Other)
  Sender: FDA-Public Use
  Company Number: EG-SEATTLE GENETICS-2021SGN04086

PATIENT
  Sex: Female

DRUGS (1)
  1. BRENTUXIMAB VEDOTIN?MPI [Suspect]
     Active Substance: BRENTUXIMAB VEDOTIN
     Indication: CUTANEOUS T-CELL LYMPHOMA
     Dosage: UNK UNK, Q3WEEKS
     Route: 042
     Dates: start: 20210714, end: 20210714

REACTIONS (1)
  - Cutaneous T-cell lymphoma [Fatal]
